FAERS Safety Report 6534633-3 (Version None)
Quarter: 2010Q1

REPORT INFORMATION
  Report Type: 
  Country: None (occurrence: None)
  Receive Date: 20100112
  Receipt Date: 20100111
  Transmission Date: 20100710
  Serious: Yes (Other)
  Sender: FDA-Public Use
  Company Number: D0065999A

PATIENT
  Age: 8 Year
  Sex: Male

DRUGS (1)
  1. VIANI MITE [Suspect]
     Dosage: 1PUFF TWICE PER DAY
     Route: 055
     Dates: start: 20070101

REACTIONS (2)
  - ADRENAL SUPPRESSION [None]
  - GROWTH RETARDATION [None]
